FAERS Safety Report 25258177 (Version 1)
Quarter: 2025Q2

REPORT INFORMATION
  Report Type: Spontaneous
  Country: US (occurrence: US)
  Receive Date: 20250501
  Receipt Date: 20250501
  Transmission Date: 20250717
  Serious: No
  Sender: SERVIER
  Company Number: US-SERVIER-S25004887

PATIENT

DRUGS (1)
  1. TIBSOVO [Suspect]
     Active Substance: IVOSIDENIB
     Indication: Glioma
     Route: 048
     Dates: start: 2024, end: 2024

REACTIONS (1)
  - Alpha 1 foetoprotein increased [Recovered/Resolved]

NARRATIVE: CASE EVENT DATE: 20240101
